FAERS Safety Report 25904342 (Version 1)
Quarter: 2025Q4

REPORT INFORMATION
  Report Type: Spontaneous
  Country: US (occurrence: US)
  Receive Date: 20251010
  Receipt Date: 20251010
  Transmission Date: 20260118
  Serious: Yes (Hospitalization, Other)
  Sender: DERMARITE INDUSTRIES
  Company Number: US-DERMARITE INDUSTRIES, LLC.-2025-DER-US000069

PATIENT

DRUGS (1)
  1. PERIGUARD [Suspect]
     Active Substance: PETROLATUM
     Indication: Therapeutic skin care topical
     Dosage: 7 OZ. PACKAGE; APPLY TO SKIN; USED FOR A LONG TIME
     Route: 061

REACTIONS (2)
  - Sepsis [Recovered/Resolved]
  - Urinary tract infection [Recovered/Resolved]

NARRATIVE: CASE EVENT DATE: 20250901
